FAERS Safety Report 18802146 (Version 2)
Quarter: 2021Q1

REPORT INFORMATION
  Report Type: Report from Study
  Country: CO (occurrence: CO)
  Receive Date: 20210128
  Receipt Date: 20210326
  Transmission Date: 20210419
  Serious: Yes (Hospitalization)
  Sender: FDA-Public Use
  Company Number: NVSC2020CO332646

PATIENT
  Age: 65 Year
  Sex: Female

DRUGS (8)
  1. LOSARTAN. [Suspect]
     Active Substance: LOSARTAN
     Indication: HYPERTENSION
     Dosage: 50 MG, Q24H
     Route: 048
  2. KISQALI [Suspect]
     Active Substance: RIBOCICLIB
     Indication: HER2 NEGATIVE BREAST CANCER
     Dosage: 600 MG, Q24H (3 TABLETS OF 200 MG) (STOPPED APPROXIMATELY A MONTH AGO)
     Route: 048
     Dates: start: 20201120
  3. KISQALI [Suspect]
     Active Substance: RIBOCICLIB
     Indication: BREAST CANCER METASTATIC
     Dosage: UNK
     Route: 048
  4. FEMARA [Suspect]
     Active Substance: LETROZOLE
     Dosage: 2.5 MG, Q24H
     Route: 048
     Dates: start: 20201111, end: 202012
  5. KISQALI [Suspect]
     Active Substance: RIBOCICLIB
     Indication: HORMONE RECEPTOR POSITIVE BREAST CANCER
     Dosage: UNK
     Route: 048
     Dates: start: 202012
  6. METFORMIN [Suspect]
     Active Substance: METFORMIN HYDROCHLORIDE
     Indication: DIABETES MELLITUS
     Dosage: 850 MG, Q24H
     Route: 048
  7. KISQALI [Suspect]
     Active Substance: RIBOCICLIB
     Indication: POSTMENOPAUSE
  8. FEMARA [Suspect]
     Active Substance: LETROZOLE
     Indication: BREAST CANCER
     Dosage: UNK
     Route: 048

REACTIONS (7)
  - Loss of consciousness [Unknown]
  - Cough [Not Recovered/Not Resolved]
  - Escherichia bacteraemia [Unknown]
  - Pneumonia [Recovering/Resolving]
  - Product prescribing error [Unknown]
  - Breast cancer recurrent [Unknown]
  - Breast cancer [Unknown]

NARRATIVE: CASE EVENT DATE: 20201206
